FAERS Safety Report 11257544 (Version 1)
Quarter: 2015Q3

REPORT INFORMATION
  Report Type: Spontaneous
  Country: US (occurrence: US)
  Receive Date: 20150709
  Receipt Date: 20150709
  Transmission Date: 20151125
  Serious: No
  Sender: FDA-Public Use
  Company Number: US-PURDUE-USA-2014-0116856

PATIENT
  Age: 58 Year
  Sex: Female

DRUGS (1)
  1. BUTRANS [Suspect]
     Active Substance: BUPRENORPHINE
     Indication: PAIN
     Dosage: 20 MCG/HR, WEEKLY
     Route: 062
     Dates: start: 201407, end: 20140815

REACTIONS (9)
  - Chills [Recovering/Resolving]
  - Application site irritation [Recovering/Resolving]
  - Wrong technique in product usage process [Recovered/Resolved]
  - Application site erythema [Recovering/Resolving]
  - Abdominal pain upper [Recovering/Resolving]
  - Application site pruritus [Recovering/Resolving]
  - Drug withdrawal syndrome [Recovering/Resolving]
  - Diarrhoea [Recovering/Resolving]
  - Influenza [Recovering/Resolving]

NARRATIVE: CASE EVENT DATE: 20140814
